FAERS Safety Report 7606592-3 (Version None)
Quarter: 2011Q3

REPORT INFORMATION
  Report Type: 
  Country: None (occurrence: None)
  Receive Date: 20110713
  Receipt Date: 20110702
  Transmission Date: 20111222
  Serious: Yes (Other)
  Sender: FDA-Public Use
  Company Number: PHHY2011NL59762

PATIENT

DRUGS (5)
  1. PREDNISONE [Concomitant]
  2. ETANERCEPT [Suspect]
  3. NSAID'S [Concomitant]
  4. METHOTREXATE [Concomitant]
  5. CYCLOSPORINE [Suspect]
     Indication: JUVENILE ARTHRITIS
     Dosage: UNK

REACTIONS (6)
  - ANAEMIA [None]
  - WEIGHT DECREASED [None]
  - DIARRHOEA [None]
  - INFLAMMATORY BOWEL DISEASE [None]
  - CROHN'S DISEASE [None]
  - ABDOMINAL PAIN [None]
